FAERS Safety Report 6400957-3 (Version None)
Quarter: 2009Q4

REPORT INFORMATION
  Report Type: 
  Country: None (occurrence: None)
  Receive Date: 20091015
  Receipt Date: 20070403
  Transmission Date: 20100525
  Serious: Yes (Disabling)
  Sender: FDA-Public Use
  Company Number: US-ASTRAZENECA-2006UW08384

PATIENT
  Sex: Male
  Weight: 124.3 kg

DRUGS (6)
  1. SEROQUEL [Suspect]
     Route: 048
     Dates: start: 20050909
  2. LEVOXYL [Concomitant]
     Dates: start: 20030711
  3. LIPITOR [Concomitant]
     Dates: start: 20021209
  4. TOPAMAX [Concomitant]
     Dates: start: 20051017
  5. ZOLOFT [Concomitant]
     Dosage: 50 - 100 MG DAILY
     Dates: start: 20021209
  6. DEPAKOTE [Concomitant]
     Indication: AFFECTIVE DISORDER
     Dates: start: 20030711

REACTIONS (1)
  - ILL-DEFINED DISORDER [None]
